FAERS Safety Report 22276746 (Version 1)
Quarter: 2023Q2

REPORT INFORMATION
  Report Type: Spontaneous
  Country: GB (occurrence: GB)
  Receive Date: 20230503
  Receipt Date: 20230503
  Transmission Date: 20230722
  Serious: Yes (Other)
  Sender: FDA-Public Use
  Company Number: GB-MHRA-MED-202304221713038130-BPCGY

PATIENT
  Age: 39 Year
  Sex: Female
  Weight: 86 kg

DRUGS (2)
  1. OZEMPIC [Suspect]
     Active Substance: SEMAGLUTIDE
     Indication: Weight control
     Dosage: 0.25 MG, QW
     Dates: start: 20230225
  2. OZEMPIC [Suspect]
     Active Substance: SEMAGLUTIDE
     Dosage: 0.5 MG, QW
     Dates: end: 20230401

REACTIONS (5)
  - Anxiety [Not Recovered/Not Resolved]
  - Intrusive thoughts [Not Recovered/Not Resolved]
  - Depressed mood [Recovering/Resolving]
  - Tachyphrenia [Recovering/Resolving]
  - Product use in unapproved indication [Unknown]

NARRATIVE: CASE EVENT DATE: 20230225
